FAERS Safety Report 8446006-7 (Version None)
Quarter: 2012Q2

REPORT INFORMATION
  Report Type: 
  Country: None (occurrence: None)
  Receive Date: 20120323
  Receipt Date: 20111208
  Transmission Date: 20120825
  Serious: Yes (Other)
  Sender: FDA-Public Use
  Company Number: 163-21880-11090611

PATIENT
  Age: 68 Year
  Sex: Female

DRUGS (8)
  1. SUDAFED 12 HOUR [Concomitant]
  2. ASPIRIN [Concomitant]
  3. FLEET LAXATIVE (BISACODYL) [Concomitant]
  4. XANAX [Concomitant]
  5. RECLAST [Concomitant]
  6. POTASSIUM CHLORIDE [Concomitant]
  7. LENALIDOMIDE [Suspect]
     Indication: MYELODYSPLASTIC SYNDROME
     Dosage: 10 MG, DAILY, PO
     Route: 048
     Dates: start: 20110829
  8. CIPRO [Concomitant]

REACTIONS (6)
  - EYE INFECTION [None]
  - OCULAR HYPERAEMIA [None]
  - FATIGUE [None]
  - HAEMOGLOBIN DECREASED [None]
  - PLATELET COUNT DECREASED [None]
  - WHITE BLOOD CELL COUNT DECREASED [None]
